FAERS Safety Report 9223402 (Version 1)
Quarter: 2013Q2

REPORT INFORMATION
  Report Type: Spontaneous
  Country: GR (occurrence: GR)
  Receive Date: 20130410
  Receipt Date: 20130410
  Transmission Date: 20140414
  Serious: Yes (Other)
  Sender: FDA-Public Use
  Company Number: GR-ROCHE-1210471

PATIENT
  Age: 28 Year
  Sex: Male

DRUGS (3)
  1. METALYSE [Suspect]
     Indication: MYOCARDIAL INFARCTION
     Route: 065
  2. GLYCERYL TRINITRATE [Concomitant]
     Indication: ACUTE MYOCARDIAL INFARCTION
     Dosage: 2 MG/MIN
     Route: 060
  3. ASPIRIN [Concomitant]
     Indication: ACUTE MYOCARDIAL INFARCTION
     Route: 065

REACTIONS (3)
  - Sinus bradycardia [Recovered/Resolved]
  - Dizziness [Recovered/Resolved]
  - Hyperhidrosis [Recovered/Resolved]
